FAERS Safety Report 8415994-7 (Version None)
Quarter: 2012Q2

REPORT INFORMATION
  Report Type: 
  Country: None (occurrence: None)
  Receive Date: 20120606
  Receipt Date: 20111014
  Transmission Date: 20120825
  Serious: No
  Sender: FDA-Public Use
  Company Number: US-PFIZER INC-2012053704

PATIENT
  Age: 73 Year
  Sex: Female

DRUGS (3)
  1. CARDIZEM [Concomitant]
     Indication: HYPERTENSION
     Route: 065
  2. MOTRIN IB [Suspect]
     Indication: PAIN
     Dosage: 800 MG, UNK
     Route: 048
  3. LEVOTHYROXINE [Concomitant]
     Indication: HYPOTHYROIDISM
     Route: 065

REACTIONS (3)
  - HYPERHIDROSIS [None]
  - INSOMNIA [None]
  - DRUG INEFFECTIVE [None]
